FAERS Safety Report 4319061-3 (Version None)
Quarter: 2004Q1

REPORT INFORMATION
  Report Type: 
  Country: None (occurrence: None)
  Receive Date: 20040318
  Receipt Date: 20040318
  Transmission Date: 20041129
  Serious: Yes (Other)
  Sender: FDA-Public Use
  Company Number: None

PATIENT
  Age: 48 Year
  Sex: Male
  Weight: 85.7298 kg

DRUGS (2)
  1. EFFEXOR XR [Suspect]
     Indication: DEPRESSION
     Dosage: 225 MG DAILY ORAL
     Route: 048
     Dates: start: 20030110, end: 20040314
  2. EFFEXOR XR [Suspect]
     Indication: GENERALISED ANXIETY DISORDER
     Dosage: 225 MG DAILY ORAL
     Route: 048
     Dates: start: 20030110, end: 20040314

REACTIONS (4)
  - ANORGASMIA [None]
  - EJACULATION DELAYED [None]
  - PENIS DISORDER [None]
  - SENSORY LOSS [None]
